FAERS Safety Report 5668177-8 (Version None)
Quarter: 2008Q1

REPORT INFORMATION
  Report Type: 
  Country: None (occurrence: None)
  Receive Date: 20080315
  Receipt Date: 20080218
  Transmission Date: 20080703
  Serious: No
  Sender: FDA-Public Use
  Company Number: US-ABBOTT-08P-163-0438825-00

PATIENT
  Sex: Female
  Weight: 66.284 kg

DRUGS (3)
  1. HUMIRA [Suspect]
     Indication: RHEUMATOID ARTHRITIS
     Route: 058
     Dates: start: 20060201
  2. ASPIRIN [Concomitant]
     Indication: CARDIOVASCULAR EVENT PROPHYLAXIS
     Route: 048
  3. ALENDRONATE SODIUM [Concomitant]
     Indication: OSTEOPOROSIS
     Route: 048
     Dates: end: 20080204

REACTIONS (5)
  - ARTHRALGIA [None]
  - BRONCHITIS [None]
  - CEREBROVASCULAR ACCIDENT [None]
  - MONOPLEGIA [None]
  - MUSCULAR WEAKNESS [None]
